FAERS Safety Report 24413448 (Version 2)
Quarter: 2025Q4

REPORT INFORMATION
  Report Type: Spontaneous
  Country: US (occurrence: US)
  Receive Date: 20241008
  Receipt Date: 20251022
  Transmission Date: 20260119
  Serious: Yes (Other)
  Sender: EMERGENT BIOSOLUTIONS
  Company Number: US-Emergent Biosolutions-24000148

PATIENT
  Age: 48 Year
  Sex: Male

DRUGS (1)
  1. NARCAN [Suspect]
     Active Substance: NALOXONE HYDROCHLORIDE
     Indication: Product used for unknown indication
     Dosage: 04 MILLIGRAM
     Route: 045

REACTIONS (2)
  - Ventricular fibrillation [Unknown]
  - Product use in unapproved indication [Unknown]
